FAERS Safety Report 11648226 (Version 2)
Quarter: 2015Q4

REPORT INFORMATION
  Report Type: Spontaneous
  Country: US (occurrence: US)
  Receive Date: 20151021
  Receipt Date: 20151124
  Transmission Date: 20160304
  Serious: No
  Sender: FDA-Public Use
  Company Number: US-PFIZER INC-2015347238

PATIENT
  Age: 59 Year
  Sex: Female
  Weight: 82 kg

DRUGS (3)
  1. SAMSCA [Concomitant]
     Active Substance: TOLVAPTAN
     Indication: MIGRAINE
  2. SAMSCA [Concomitant]
     Active Substance: TOLVAPTAN
     Indication: ABDOMINAL DISCOMFORT
     Dosage: UNK
  3. NEUMEGA [Suspect]
     Active Substance: OPRELVEKIN
     Indication: PLATELET COUNT DECREASED
     Dosage: 5 MG, 1X/DAY
     Route: 030
     Dates: start: 201509

REACTIONS (5)
  - Contusion [Unknown]
  - Product packaging quantity issue [Unknown]
  - Injury [Unknown]
  - Drug ineffective [Unknown]
  - Product shape issue [Unknown]

NARRATIVE: CASE EVENT DATE: 20151009
